FAERS Safety Report 5413338-6 (Version None)
Quarter: 2007Q3

REPORT INFORMATION
  Report Type: 
  Country: None (occurrence: None)
  Receive Date: 20070814
  Receipt Date: 20070808
  Transmission Date: 20080115
  Serious: Yes (Hospitalization, Disabling, Other)
  Sender: FDA-Public Use
  Company Number: ITWYE593318APR05

PATIENT
  Sex: Male
  Weight: 70 kg

DRUGS (6)
  1. TRETINOIN [Suspect]
     Indication: ACUTE PROMYELOCYTIC LEUKAEMIA
     Dosage: 80 MG
     Dates: start: 20030901, end: 20040617
  2. TRETINOIN [Suspect]
     Dosage: 80 MG
     Dates: start: 20040729
  3. MERCAPTOPURINE [Suspect]
     Indication: ACUTE PROMYELOCYTIC LEUKAEMIA
     Dosage: 50 MG
     Dates: start: 20030901, end: 20040617
  4. MERCAPTOPURINE [Suspect]
     Dosage: 50 MG
     Dates: start: 20040729
  5. METHOTREXATE [Suspect]
     Indication: ACUTE PROMYELOCYTIC LEUKAEMIA
     Dosage: 25 MG
     Dates: start: 20030901, end: 20040617
  6. METHOTREXATE [Suspect]
     Dosage: 25 MG
     Dates: start: 20040729

REACTIONS (2)
  - METASTASES TO LIVER [None]
  - MYELODYSPLASTIC SYNDROME [None]
